FAERS Safety Report 24551427 (Version 2)
Quarter: 2024Q4

REPORT INFORMATION
  Report Type: Spontaneous
  Country: US (occurrence: US)
  Receive Date: 20241026
  Receipt Date: 20241201
  Transmission Date: 20250115
  Serious: Yes (Hospitalization, Other)
  Sender: AUROBINDO
  Company Number: US-AUROBINDO-AUR-APL-2024-051219

PATIENT
  Age: 40 Year
  Sex: Female
  Weight: 59 kg

DRUGS (7)
  1. LOSARTAN [Suspect]
     Active Substance: LOSARTAN
     Indication: Hypertension
     Dosage: UNK
     Route: 065
  2. LOSARTAN [Suspect]
     Active Substance: LOSARTAN
     Indication: Proteinuria
     Dosage: 25 MILLIGRAM
     Route: 065
     Dates: start: 20240926
  3. JYNARQUE [Concomitant]
     Active Substance: TOLVAPTAN
     Indication: Congenital cystic kidney disease
     Dosage: 45 MILLIGRAM
     Route: 065
     Dates: start: 202407
  4. JYNARQUE [Concomitant]
     Active Substance: TOLVAPTAN
     Dosage: 15 MILLIGRAM
     Route: 065
     Dates: start: 202407
  5. JYNARQUE [Concomitant]
     Active Substance: TOLVAPTAN
     Dosage: UNK
     Route: 065
     Dates: start: 20240811
  6. JYNARQUE [Concomitant]
     Active Substance: TOLVAPTAN
     Dosage: UNK (LOWER DOSE)
     Route: 065
     Dates: start: 2024, end: 20240926
  7. LOKELMA [Concomitant]
     Active Substance: SODIUM ZIRCONIUM CYCLOSILICATE
     Indication: Hyperkalaemia
     Dosage: UNK
     Route: 065

REACTIONS (5)
  - Abdominal hernia [Unknown]
  - Urinary tract infection [Unknown]
  - Hyperkalaemia [Unknown]
  - Transaminases increased [Not Recovered/Not Resolved]
  - Laboratory test abnormal [Unknown]

NARRATIVE: CASE EVENT DATE: 20240926
